FAERS Safety Report 5857831-0 (Version None)
Quarter: 2008Q3

REPORT INFORMATION
  Report Type: 
  Country: None (occurrence: None)
  Receive Date: 20080822
  Receipt Date: 20080812
  Transmission Date: 20090109
  Serious: Yes (Death)
  Sender: FDA-Public Use
  Company Number: 2008BI020676

PATIENT
  Sex: Male

DRUGS (5)
  1. TYSABRI [Suspect]
     Indication: MULTIPLE SCLEROSIS
     Dosage: 300 MG; QM; IV
     Route: 042
     Dates: start: 20080804
  2. SPIRICORT [Concomitant]
  3. SORTIS [Concomitant]
  4. BISOPROLOL FUMARATE [Concomitant]
  5. PRADIF [Concomitant]

REACTIONS (1)
  - DEATH [None]
